FAERS Safety Report 5151456-0 (Version None)
Quarter: 2006Q4

REPORT INFORMATION
  Report Type: 
  Country: None (occurrence: None)
  Receive Date: 20061115
  Receipt Date: 20061102
  Transmission Date: 20070319
  Serious: Yes (Other)
  Sender: FDA-Public Use
  Company Number: US-ELI_LILLY_AND_COMPANY-US200611000577

PATIENT

DRUGS (4)
  1. CYMBALTA [Suspect]
     Indication: ANXIETY
     Dosage: UNK MG, UNK
     Dates: start: 20060401, end: 20060401
  2. DETROL [Concomitant]
     Indication: URINARY INCONTINENCE
     Dosage: UNK MG, AS NEEDED
  3. PLAVIX                                  /UNK/ [Concomitant]
  4. NEXIUM [Concomitant]
     Indication: GASTROOESOPHAGEAL REFLUX DISEASE
     Dosage: 40 MG, DAILY (1/D)

REACTIONS (9)
  - BALANCE DISORDER [None]
  - CONDITION AGGRAVATED [None]
  - COORDINATION ABNORMAL [None]
  - FEAR [None]
  - FLASHBACK [None]
  - HALLUCINATION [None]
  - SOMATOFORM DISORDER [None]
  - TREMOR [None]
  - VERTIGO [None]
